FAERS Safety Report 6869269-8 (Version None)
Quarter: 2010Q3

REPORT INFORMATION
  Report Type: 
  Country: None (occurrence: None)
  Receive Date: 20100722
  Receipt Date: 20080722
  Transmission Date: 20110219
  Serious: Yes (Other)
  Sender: FDA-Public Use
  Company Number: US-PFIZER INC-2008063040

PATIENT
  Age: 65 Year
  Sex: Female
  Weight: 65.909 kg

DRUGS (4)
  1. CHANTIX [Suspect]
     Indication: SMOKING CESSATION THERAPY
     Dates: start: 20080201
  2. PROZAC [Concomitant]
  3. DUONEB [Concomitant]
  4. SPIRIVA [Concomitant]

REACTIONS (4)
  - CARBON DIOXIDE DECREASED [None]
  - DIZZINESS [None]
  - VERTIGO [None]
  - WRONG TECHNIQUE IN DRUG USAGE PROCESS [None]
